FAERS Safety Report 25259180 (Version 2)
Quarter: 2025Q3

REPORT INFORMATION
  Report Type: Spontaneous
  Country: US (occurrence: US)
  Receive Date: 20250501
  Receipt Date: 20250724
  Transmission Date: 20251020
  Serious: Yes (Hospitalization, Other)
  Sender: UNITED THERAPEUTICS
  Company Number: US-UNITED THERAPEUTICS-UNT-2025-013197

PATIENT
  Age: 74 Year
  Sex: Male

DRUGS (8)
  1. TYVASO DPI [Suspect]
     Active Substance: TREPROSTINIL
     Indication: Pulmonary arterial hypertension
     Dosage: 16 ?G, QID
     Dates: start: 20250415, end: 20250415
  2. TYVASO DPI [Suspect]
     Active Substance: TREPROSTINIL
     Indication: Pulmonary arterial hypertension
  3. TYVASO DPI [Suspect]
     Active Substance: TREPROSTINIL
     Indication: Pulmonary arterial hypertension
  4. TYVASO DPI [Suspect]
     Active Substance: TREPROSTINIL
     Indication: Pulmonary arterial hypertension
  5. ENSIFENTRINE [Concomitant]
     Active Substance: ENSIFENTRINE
     Indication: Chronic obstructive pulmonary disease
     Dosage: 3 MG, BID
     Dates: start: 202501
  6. ENSIFENTRINE [Concomitant]
     Active Substance: ENSIFENTRINE
     Dosage: UNK, BID
     Dates: start: 20241224
  7. OXYGEN [Concomitant]
     Active Substance: OXYGEN
     Indication: Dyspnoea at rest
  8. OXYGEN [Concomitant]
     Active Substance: OXYGEN
     Indication: Oxygen saturation decreased

REACTIONS (9)
  - Bronchospasm [Recovered/Resolved]
  - Dyspnoea at rest [Recovered/Resolved]
  - Oxygen saturation decreased [Unknown]
  - Cough [Unknown]
  - Hyperhidrosis [Recovered/Resolved]
  - Stridor [Unknown]
  - Panic reaction [Unknown]
  - Speech disorder [Unknown]
  - Tremor [Recovered/Resolved]

NARRATIVE: CASE EVENT DATE: 20250415
